FAERS Safety Report 9832346 (Version 5)
Quarter: 2014Q1

REPORT INFORMATION
  Report Type: Report from Study
  Country: MY (occurrence: MY)
  Receive Date: 20140121
  Receipt Date: 20140328
  Transmission Date: 20141002
  Serious: Yes (Death, Hospitalization, Other)
  Sender: FDA-Public Use
  Company Number: MY-ROCHE-1312423

PATIENT
  Age: 49 Year
  Sex: Male
  Weight: 59 kg

DRUGS (7)
  1. RITUXIMAB [Suspect]
     Indication: DIFFUSE LARGE B-CELL LYMPHOMA
     Dosage: 375 MG/M2, .0CYCLES 1-4 AS PER PROTOCOL.
     Route: 042
     Dates: start: 20130928
  2. RITUXIMAB [Suspect]
     Route: 042
     Dates: start: 20131108
  3. HYDROCORTISONE [Concomitant]
     Indication: PREMEDICATION
     Dosage: ONCE
     Route: 042
     Dates: start: 20131004, end: 20131004
  4. PIRITON [Concomitant]
     Indication: PREMEDICATION
     Dosage: ONCE
     Route: 042
     Dates: start: 20131004, end: 20131004
  5. PACKED CELLS [Concomitant]
     Indication: ANAEMIA
     Dosage: DOSE : 1 OTHER.
     Route: 042
     Dates: start: 20131004, end: 20131005
  6. PREDNISOLONE [Concomitant]
     Indication: AUTOIMMUNE HAEMOLYTIC ANAEMIA
     Dosage: EVERY DAY
     Route: 048
     Dates: start: 20130825, end: 20130905
  7. NEUPOGEN [Concomitant]
     Indication: NEUTROPENIA
     Dosage: DOSE : 30 MIU, EVERY DAY.
     Route: 058
     Dates: start: 20131007, end: 20131008

REACTIONS (2)
  - Pneumonitis [Fatal]
  - Computerised tomogram abnormal [Unknown]
